FAERS Safety Report 17257997 (Version 3)
Quarter: 2020Q1

REPORT INFORMATION
  Report Type: Spontaneous
  Country: IE (occurrence: IE)
  Receive Date: 20200110
  Receipt Date: 20200305
  Transmission Date: 20200409
  Serious: Yes (Other)
  Sender: FDA-Public Use
  Company Number: IE-009507513-2001IRL001634

PATIENT
  Sex: Female

DRUGS (1)
  1. SINEMET PLUS 25MG/100MG TABLETS [Suspect]
     Active Substance: CARBIDOPA\LEVODOPA
     Dosage: UNK, Q8H

REACTIONS (8)
  - Musculoskeletal stiffness [Unknown]
  - Product physical issue [Unknown]
  - Movement disorder [Unknown]
  - Therapeutic product effect decreased [Unknown]
  - On and off phenomenon [Unknown]
  - Pain [Unknown]
  - Suspected product quality issue [Unknown]
  - Freezing phenomenon [Unknown]
